FAERS Safety Report 22296514 (Version 1)
Quarter: 2023Q2

REPORT INFORMATION
  Report Type: Spontaneous
  Country: US (occurrence: None)
  Receive Date: 20230506
  Receipt Date: 20230506
  Transmission Date: 20230721
  Serious: Yes (Hospitalization)
  Sender: FDA-Public Use
  Company Number: None

PATIENT
  Age: 42 Year
  Sex: Female
  Weight: 135 kg

DRUGS (1)
  1. HERBALS\TETRAHYDROCANNABINOL MIXED [Suspect]
     Active Substance: HERBALS\TETRAHYDROCANNABINOL MIXED
     Dates: start: 20230505, end: 20230505

REACTIONS (5)
  - Vomiting [None]
  - Adverse drug reaction [None]
  - Product administration error [None]
  - Incorrect dose administered [None]
  - Product label issue [None]

NARRATIVE: CASE EVENT DATE: 20230505
